FAERS Safety Report 4536959-1 (Version None)
Quarter: 2004Q4

REPORT INFORMATION
  Report Type: 
  Country: None (occurrence: None)
  Receive Date: 20041220
  Receipt Date: 20041207
  Transmission Date: 20050328
  Serious: Yes (Hospitalization)
  Sender: FDA-Public Use
  Company Number: 167-20785-04120457

PATIENT
  Age: 76 Year
  Sex: Male

DRUGS (8)
  1. THALIDOMIDE-PHARMION (THALIDOMIDE) (100 MILLIGRAM, CAPSULES) [Suspect]
     Indication: NON-SMALL CELL LUNG CANCER
     Dosage: SEE IMAGE
     Route: 048
     Dates: start: 20041101, end: 20041201
  2. THALIDOMIDE-PHARMION (THALIDOMIDE) (100 MILLIGRAM, CAPSULES) [Suspect]
     Indication: NON-SMALL CELL LUNG CANCER
     Dosage: SEE IMAGE
     Route: 048
     Dates: start: 20041202
  3. GEMCITABINE (GEMCITABINE) [Suspect]
     Indication: NON-SMALL CELL LUNG CANCER
     Dosage: 2196 MG, DAILY, INTRAVENOUS
     Route: 042
     Dates: start: 20041126, end: 20041203
  4. CARBOPLATIN [Suspect]
     Indication: NON-SMALL CELL LUNG CANCER
     Dosage: 500 MG, DAILY, INTRAVENOUS
     Route: 042
     Dates: start: 20041126, end: 20041126
  5. DEXAMETHASONE [Concomitant]
  6. MOVICOL (NULYTELY) -  (CACHET) [Concomitant]
  7. SENNA (SENNA) (TABLETS) [Concomitant]
  8. LACTULOSE [Concomitant]

REACTIONS (7)
  - GAIT DISTURBANCE [None]
  - HAEMOGLOBIN DECREASED [None]
  - MUSCLE ATROPHY [None]
  - NEUTROPHIL COUNT ABNORMAL [None]
  - PLATELET COUNT ABNORMAL [None]
  - TREMOR [None]
  - VISION BLURRED [None]
